FAERS Safety Report 10593276 (Version 1)
Quarter: 2014Q4

REPORT INFORMATION
  Report Type: Spontaneous
  Country: US (occurrence: US)
  Receive Date: 20141119
  Receipt Date: 20141119
  Transmission Date: 20150529
  Serious: No
  Sender: FDA-Public Use
  Company Number: US-009507513-1411USA008655

PATIENT

DRUGS (1)
  1. NASONEX [Suspect]
     Active Substance: MOMETASONE FUROATE
     Dosage: TWO SPRAYS IN EACH NOSTRIL EVERY DAY
     Route: 045
     Dates: start: 20140721

REACTIONS (3)
  - Product quality issue [Unknown]
  - No adverse event [Unknown]
  - Drug dose omission [Unknown]

NARRATIVE: CASE EVENT DATE: 2014
